FAERS Safety Report 16321797 (Version 1)
Quarter: 2019Q2

REPORT INFORMATION
  Report Type: Spontaneous
  Country: FR (occurrence: FR)
  Receive Date: 20190516
  Receipt Date: 20190516
  Transmission Date: 20190711
  Serious: Yes (Hospitalization)
  Sender: FDA-Public Use
  Company Number: FR-JNJFOC-20190512667

PATIENT
  Age: 70 Year
  Sex: Male
  Weight: 89.9 kg

DRUGS (13)
  1. GALVUS [Concomitant]
     Active Substance: VILDAGLIPTIN
     Route: 065
  2. LASILIX [Suspect]
     Active Substance: FUROSEMIDE
     Indication: ACUTE PULMONARY OEDEMA
     Route: 065
     Dates: start: 20190406, end: 20190415
  3. NOVORAPID [Concomitant]
     Active Substance: INSULIN ASPART
     Route: 065
  4. SEEBRI BREEZHALER [Concomitant]
     Active Substance: GLYCOPYRROLATE
     Route: 065
  5. ATORVASTATIN [Concomitant]
     Active Substance: ATORVASTATIN
     Route: 065
  6. TRUXIMA [Suspect]
     Active Substance: RITUXIMAB-ABBS
     Indication: THROMBOTIC THROMBOCYTOPENIC PURPURA
     Route: 041
     Dates: start: 20181114, end: 20190404
  7. PANTOPRAZOLE [Concomitant]
     Active Substance: PANTOPRAZOLE
     Route: 065
  8. DARZALEX [Suspect]
     Active Substance: DARATUMUMAB
     Indication: THROMBOTIC THROMBOCYTOPENIC PURPURA
     Route: 041
     Dates: start: 20190415, end: 20190415
  9. CORTANCYL [Concomitant]
     Active Substance: PREDNISONE
     Route: 065
  10. ABASAGLAR [Concomitant]
     Active Substance: INSULIN GLARGINE
     Route: 065
  11. ZELITREX [Concomitant]
     Active Substance: VALACYCLOVIR HYDROCHLORIDE
     Route: 065
     Dates: start: 20190220
  12. ADENURIC [Concomitant]
     Active Substance: FEBUXOSTAT
     Route: 065
  13. SPIRIVA [Concomitant]
     Active Substance: TIOTROPIUM BROMIDE MONOHYDRATE
     Route: 065

REACTIONS (3)
  - Product use in unapproved indication [Unknown]
  - Agranulocytosis [Recovered/Resolved]
  - Off label use [Unknown]

NARRATIVE: CASE EVENT DATE: 20190415
